FAERS Safety Report 13803316 (Version 5)
Quarter: 2017Q3

REPORT INFORMATION
  Report Type: Report from Study
  Country: BE (occurrence: BE)
  Receive Date: 20170728
  Receipt Date: 20170929
  Transmission Date: 20171127
  Serious: Yes (Death, Hospitalization, Disabling, Other)
  Sender: FDA-Public Use
  Company Number: BE-PFIZER INC-2017316723

PATIENT
  Age: 35 Year
  Sex: Male
  Weight: 71 kg

DRUGS (4)
  1. INLYTA [Suspect]
     Active Substance: AXITINIB
     Indication: GLIOBLASTOMA
     Dosage: 5 MG, 2X/DAY
     Dates: start: 20170622, end: 20170719
  2. PREDNISOLONE. [Suspect]
     Active Substance: PREDNISOLONE
     Indication: GLIOBLASTOMA MULTIFORME
     Dosage: 1 DF, 1X/DAY
     Route: 048
     Dates: start: 20170530, end: 20170719
  3. PREDNISOLONE. [Suspect]
     Active Substance: PREDNISOLONE
     Dosage: 0.5 DF, 1X/DAY
     Route: 048
     Dates: start: 20170719
  4. KEPPRA [Suspect]
     Active Substance: LEVETIRACETAM
     Dosage: 1000 MG, 1X/DAY

REACTIONS (6)
  - Haematemesis [Not Recovered/Not Resolved]
  - Neoplasm progression [Fatal]
  - Gastrooesophageal reflux disease [Not Recovered/Not Resolved]
  - Thrombocytopenia [Not Recovered/Not Resolved]
  - Hepatitis [Not Recovered/Not Resolved]
  - Oesophageal ulcer [Not Recovered/Not Resolved]

NARRATIVE: CASE EVENT DATE: 20170719
